FAERS Safety Report 7069732-3 (Version None)
Quarter: 2010Q4

REPORT INFORMATION
  Report Type: 
  Country: None (occurrence: None)
  Receive Date: 20101028
  Receipt Date: 20100512
  Transmission Date: 20110411
  Serious: No
  Sender: FDA-Public Use
  Company Number: US-WYE-H15109510

PATIENT
  Age: 15 Year
  Sex: Female

DRUGS (1)
  1. PROTONIX [Suspect]
     Dosage: UNKNOWN
     Dates: start: 20100301, end: 20100501

REACTIONS (2)
  - GENITAL ULCERATION [None]
  - MOUTH ULCERATION [None]
